FAERS Safety Report 19801847 (Version 2)
Quarter: 2021Q3

REPORT INFORMATION
  Report Type: Spontaneous
  Country: US (occurrence: US)
  Receive Date: 20210908
  Receipt Date: 20210913
  Transmission Date: 20211014
  Serious: No
  Sender: FDA-Public Use
  Company Number: US-SA-2021SA293429

PATIENT
  Age: 46 Year
  Sex: Female

DRUGS (1)
  1. KEVZARA [Suspect]
     Active Substance: SARILUMAB
     Dosage: UNK UNK, QOW
     Dates: start: 20210731

REACTIONS (5)
  - Injection site swelling [Unknown]
  - Injection site vesicles [Unknown]
  - Arthritis [Unknown]
  - Injection site rash [Unknown]
  - Inflammation [Unknown]

NARRATIVE: CASE EVENT DATE: 202108
